FAERS Safety Report 10711735 (Version 2)
Quarter: 2015Q2

REPORT INFORMATION
  Report Type: Spontaneous
  Country: FR (occurrence: FR)
  Receive Date: 20150114
  Receipt Date: 20150416
  Transmission Date: 20150821
  Serious: Yes (Other)
  Sender: FDA-Public Use
  Company Number: FR-ASTRAZENECA-2015SE03024

PATIENT
  Age: 472 Month
  Sex: Female

DRUGS (12)
  1. INSULINE [Concomitant]
     Active Substance: INSULIN NOS
     Route: 058
  2. DELURSAN [Concomitant]
     Active Substance: URSODIOL
     Route: 048
  3. BISOCE [Concomitant]
     Active Substance: BISOPROLOL
     Route: 048
  4. EUPANTOL [Concomitant]
     Active Substance: PANTOPRAZOLE SODIUM
     Route: 048
  5. ENTOCORT [Suspect]
     Active Substance: BUDESONIDE
     Route: 048
     Dates: start: 201401
  6. NOXAFIL [Suspect]
     Active Substance: POSACONAZOLE
     Route: 041
     Dates: start: 201403
  7. ZECLAR [Concomitant]
     Active Substance: CLARITHROMYCIN
     Route: 048
  8. PAROXETINE [Concomitant]
     Active Substance: PAROXETINE\PAROXETINE HYDROCHLORIDE
     Route: 048
  9. ROVALCYTE [Concomitant]
     Active Substance: VALGANCICLOVIR HYDROCHLORIDE
     Dosage: 450 MG UNSPECIFIED FREQUENCY
     Route: 048
  10. ENTOCORT [Suspect]
     Active Substance: BUDESONIDE
     Route: 048
     Dates: start: 201401, end: 2014
  11. LUTENYL [Concomitant]
     Active Substance: NOMEGESTROL ACETATE
     Route: 048
  12. CREON [Concomitant]
     Active Substance: PANCRELIPASE AMYLASE\PANCRELIPASE LIPASE\PANCRELIPASE PROTEASE
     Route: 048

REACTIONS (1)
  - Osteonecrosis [Not Recovered/Not Resolved]

NARRATIVE: CASE EVENT DATE: 201408
